FAERS Safety Report 8279959-0 (Version None)
Quarter: 2012Q2

REPORT INFORMATION
  Report Type: 
  Country: None (occurrence: None)
  Receive Date: 20120412
  Receipt Date: 20110818
  Transmission Date: 20120825
  Serious: No
  Sender: FDA-Public Use
  Company Number: US-ASTRAZENECA-2011SE43610

PATIENT
  Age: 61 Year
  Sex: Female
  Weight: 56.7 kg

DRUGS (8)
  1. PREDNISONE TAB [Concomitant]
  2. PROGRAF [Concomitant]
  3. NEXIUM [Suspect]
     Indication: DUODENAL ULCER PERFORATION
     Route: 048
     Dates: end: 20110101
  4. PRILOSEC [Suspect]
     Indication: DUODENAL ULCER PERFORATION
     Route: 048
     Dates: start: 20110101
  5. NEXIUM [Suspect]
     Indication: GASTROINTESTINAL HAEMORRHAGE
     Route: 048
     Dates: end: 20110101
  6. PRILOSEC [Suspect]
     Indication: GASTROINTESTINAL HAEMORRHAGE
     Route: 048
     Dates: start: 20110101
  7. FOLIC ACID [Concomitant]
  8. SYNTHROID [Concomitant]

REACTIONS (3)
  - HEADACHE [None]
  - OFF LABEL USE [None]
  - DYSGEUSIA [None]
